FAERS Safety Report 9205202 (Version 1)
Quarter: 2013Q2

REPORT INFORMATION
  Report Type: Spontaneous
  Country: IT (occurrence: IT)
  Receive Date: 20130402
  Receipt Date: 20130402
  Transmission Date: 20140414
  Serious: Yes (Hospitalization)
  Sender: FDA-Public Use
  Company Number: PHHY2013IT030072

PATIENT
  Sex: Male

DRUGS (4)
  1. AMOXICILLIN [Suspect]
     Indication: EAR PAIN
     Dosage: 2 G, DAILY
     Route: 048
     Dates: start: 20121224, end: 20121229
  2. HALDOL [Concomitant]
  3. DELORAZEPAM [Concomitant]
  4. BISOPROLOL [Concomitant]

REACTIONS (5)
  - Hypersensitivity [Recovering/Resolving]
  - Presyncope [Recovering/Resolving]
  - Malaise [Recovering/Resolving]
  - Pruritus [Recovering/Resolving]
  - Urticaria [Recovering/Resolving]
